FAERS Safety Report 8986940 (Version 1)
Quarter: 2012Q4

REPORT INFORMATION
  Report Type: 
  Country: NL (occurrence: NL)
  Receive Date: 20121226
  Receipt Date: 20121226
  Transmission Date: 20130627
  Serious: Yes (Life-Threatening, Other)
  Sender: FDA-Public Use
  Company Number: NL-MYLANLABS-2012S1025792

PATIENT
  Age: 42 Year
  Sex: Male
  Weight: 63 kg

DRUGS (2)
  1. TERBINAFINE [Suspect]
     Indication: FUNGAL INFECTION
     Dosage: 1 keer per dag 1 stuk(s), extra info: 250mg
     Route: 048
     Dates: start: 20121119, end: 20121207
  2. KEPPRA [Interacting]
     Indication: EPILEPSY
     Dosage: 2 keer per dag 1 stuk(s), extra info: 250 mg
     Route: 048
     Dates: start: 20100101

REACTIONS (4)
  - Aggression [Recovering/Resolving]
  - Hallucination [Recovering/Resolving]
  - Drug interaction [Recovering/Resolving]
  - Anxiety [Recovering/Resolving]
